FAERS Safety Report 5504835-3 (Version None)
Quarter: 2007Q4

REPORT INFORMATION
  Report Type: 
  Country: None (occurrence: None)
  Receive Date: 20071102
  Receipt Date: 20071024
  Transmission Date: 20080405
  Serious: Yes (Other)
  Sender: FDA-Public Use
  Company Number: BR-JNJFOC-20071007546

PATIENT
  Age: 79 Year
  Sex: Male
  Weight: 65 kg

DRUGS (3)
  1. RAZADYNE ER [Suspect]
     Indication: DEMENTIA ALZHEIMER'S TYPE
  2. PAMELOR [Concomitant]
  3. ALOE VERA [Concomitant]

REACTIONS (1)
  - VISUAL ACUITY REDUCED [None]
